FAERS Safety Report 18383821 (Version 5)
Quarter: 2021Q3

REPORT INFORMATION
  Report Type: Spontaneous
  Country: AU (occurrence: AU)
  Receive Date: 20201014
  Receipt Date: 20210730
  Transmission Date: 20211014
  Serious: Yes (Life-Threatening, Hospitalization, Other)
  Sender: FDA-Public Use
  Company Number: AU-TAKEDA-2020TUS039058

PATIENT
  Age: 77 Year
  Sex: Male
  Weight: 86 kg

DRUGS (8)
  1. ICLUSIG [Suspect]
     Active Substance: PONATINIB
     Indication: PHILADELPHIA POSITIVE CHRONIC MYELOID LEUKAEMIA
     Dosage: 30 MILLIGRAM, QD
     Route: 048
     Dates: start: 20150618, end: 20200120
  2. ASPIRIN                            /00002701/ [Concomitant]
     Active Substance: ASPIRIN
     Dosage: 100 MILLIGRAM, QD
     Route: 048
  3. FELODIPINE. [Concomitant]
     Active Substance: FELODIPINE
     Dosage: 5 MILLIGRAM
     Route: 048
  4. CLOPIDOGREL [Concomitant]
     Active Substance: CLOPIDOGREL BISULFATE
     Dosage: 75 MILLIGRAM, QD
     Route: 048
     Dates: start: 201912
  5. ICLUSIG [Suspect]
     Active Substance: PONATINIB
     Dosage: 15 MILLIGRAM
     Route: 048
  6. ATORVASTATIN [Concomitant]
     Active Substance: ATORVASTATIN
     Dosage: 80 MILLIGRAM, QD
     Route: 048
     Dates: start: 201912
  7. QUINAPRIL. [Concomitant]
     Active Substance: QUINAPRIL
     Dosage: 5 MILLIGRAM, QD
     Route: 048
  8. AMLODIPINE [Concomitant]
     Active Substance: AMLODIPINE BESYLATE
     Dosage: 2.5 MILLIGRAM, QD
     Route: 048
     Dates: start: 2016

REACTIONS (11)
  - Transient ischaemic attack [Recovered/Resolved]
  - Nausea [Recovered/Resolved]
  - Balance disorder [Recovered/Resolved]
  - Carotid artery stenosis [Recovered/Resolved]
  - Carotid artery disease [Recovered/Resolved]
  - Dizziness [Recovered/Resolved]
  - Cerebral small vessel ischaemic disease [Recovered/Resolved]
  - Subclavian artery stenosis [Recovered/Resolved]
  - Lacunar infarction [Recovered/Resolved]
  - Off label use [Unknown]
  - Vertebral artery stenosis [Recovered/Resolved]

NARRATIVE: CASE EVENT DATE: 20191220
